FAERS Safety Report 13259842 (Version 1)
Quarter: 2017Q1

REPORT INFORMATION
  Report Type: Report from Study
  Country: CO (occurrence: CO)
  Receive Date: 20170222
  Receipt Date: 20170222
  Transmission Date: 20170428
  Serious: Yes (Hospitalization, Other)
  Sender: FDA-Public Use
  Company Number: CO-BAYER-2016-074768

PATIENT
  Age: 33 Year
  Sex: Female

DRUGS (1)
  1. ADEMPAS [Suspect]
     Active Substance: RIOCIGUAT
     Indication: PULMONARY HYPERTENSION
     Dosage: 2.5 MG, TID
     Dates: start: 20150911

REACTIONS (5)
  - Syncope [Recovered/Resolved]
  - Nausea [Not Recovered/Not Resolved]
  - Ear pain [Recovered/Resolved]
  - Dizziness [Not Recovered/Not Resolved]
  - Female sterilisation [Recovering/Resolving]

NARRATIVE: CASE EVENT DATE: 20160418
